FAERS Safety Report 23726327 (Version 1)
Quarter: 2024Q2

REPORT INFORMATION
  Report Type: Spontaneous
  Country: US (occurrence: US)
  Receive Date: 20240410
  Receipt Date: 20240410
  Transmission Date: 20240716
  Serious: No
  Sender: FDA-Public Use
  Company Number: US-TEVA-VS-3177656

PATIENT
  Age: 38 Year
  Sex: Female

DRUGS (1)
  1. APRI [Suspect]
     Active Substance: DESOGESTREL\ETHINYL ESTRADIOL
     Indication: Polycystic ovarian syndrome
     Dosage: 0.15-0.03 MG-MG
     Route: 065
     Dates: start: 2015

REACTIONS (6)
  - Emotional disorder [Unknown]
  - Acne [Unknown]
  - Product use in unapproved indication [Unknown]
  - Hypomenorrhoea [Unknown]
  - Urine luteinising hormone test [Unknown]
  - Irritability [Unknown]
